FAERS Safety Report 8811773 (Version 4)
Quarter: 2012Q4

REPORT INFORMATION
  Report Type: 
  Country: SI (occurrence: SI)
  Receive Date: 20120927
  Receipt Date: 20121016
  Transmission Date: 20130627
  Serious: Yes (Hospitalization)
  Sender: FDA-Public Use
  Company Number: SI-GLAXOSMITHKLINE-B0833109A

PATIENT
  Age: 69 Year
  Sex: Male
  Weight: 74 kg

DRUGS (7)
  1. ARZERRA [Suspect]
     Indication: CHRONIC LYMPHOCYTIC LEUKAEMIA
     Route: 042
     Dates: start: 20120323
  2. PRIMOTREN [Concomitant]
     Indication: ANTIBIOTIC PROPHYLAXIS
     Route: 048
  3. VALTREX [Concomitant]
     Indication: ANTIVIRAL PROPHYLAXIS
     Route: 048
  4. GLUCOTROL [Concomitant]
     Indication: DIABETES MELLITUS
     Route: 048
  5. CLEMASTINE [Concomitant]
     Route: 042
  6. ANALGIN [Concomitant]
     Route: 042
  7. SOLUMEDROL [Concomitant]
     Route: 042

REACTIONS (4)
  - Dermatitis bullous [Not Recovered/Not Resolved]
  - Porphyria [Unknown]
  - Dyspnoea [Recovered/Resolved]
  - Oxygen saturation decreased [Recovered/Resolved]
